FAERS Safety Report 10566264 (Version 2)
Quarter: 2014Q4

REPORT INFORMATION
  Report Type: Spontaneous
  Country: US (occurrence: US)
  Receive Date: 20141105
  Receipt Date: 20141212
  Transmission Date: 20150529
  Serious: Yes (Life-Threatening, Hospitalization, Other)
  Sender: FDA-Public Use
  Company Number: US-ABBVIE-14P-163-1302596-00

PATIENT
  Age: 52 Year
  Sex: Male

DRUGS (2)
  1. ANDROGEL [Suspect]
     Active Substance: TESTOSTERONE
     Indication: BLOOD TESTOSTERONE DECREASED
     Route: 062
     Dates: start: 201111, end: 20121113
  2. AXIRON [Suspect]
     Active Substance: TESTOSTERONE
     Indication: PRODUCT USED FOR UNKNOWN INDICATION
     Route: 065
     Dates: start: 20121113, end: 201306

REACTIONS (11)
  - Impaired work ability [Unknown]
  - Anxiety [Unknown]
  - Anhedonia [Unknown]
  - Economic problem [Unknown]
  - Acute coronary syndrome [Unknown]
  - Fear [Unknown]
  - Loss of employment [Unknown]
  - Pain [Unknown]
  - Injury [Unknown]
  - Cardiovascular disorder [Unknown]
  - Social problem [Unknown]

NARRATIVE: CASE EVENT DATE: 201211
